FAERS Safety Report 16094141 (Version 2)
Quarter: 2019Q2

REPORT INFORMATION
  Report Type: Report from Study
  Country: CN (occurrence: CN)
  Receive Date: 20190320
  Receipt Date: 20190401
  Transmission Date: 20190711
  Serious: Yes (Hospitalization, Other)
  Sender: FDA-Public Use
  Company Number: CN-ROCHE-1596297

PATIENT
  Age: 72 Year
  Sex: Male
  Weight: 71 kg

DRUGS (3)
  1. AVASTIN [Suspect]
     Active Substance: BEVACIZUMAB
     Indication: RECTAL CANCER
     Route: 041
     Dates: start: 20140604, end: 20160126
  2. AVASTIN [Suspect]
     Active Substance: BEVACIZUMAB
     Route: 041
  3. AVASTIN [Suspect]
     Active Substance: BEVACIZUMAB
     Route: 041

REACTIONS (7)
  - Nasopharyngitis [Unknown]
  - Pyrexia [Unknown]
  - Decreased immune responsiveness [Unknown]
  - Renal impairment [Unknown]
  - Pyrexia [Unknown]
  - General physical health deterioration [Unknown]
  - Pneumonia [Unknown]

NARRATIVE: CASE EVENT DATE: 20150531
